FAERS Safety Report 4481355-9 (Version None)
Quarter: 2004Q3

REPORT INFORMATION
  Report Type: 
  Country: None (occurrence: None)
  Receive Date: 20040923
  Receipt Date: 20040728
  Transmission Date: 20050211
  Serious: No
  Sender: FDA-Public Use
  Company Number: USA031050738

PATIENT
  Age: 78 Year
  Sex: Female
  Weight: 55 kg

DRUGS (8)
  1. FORTEO [Suspect]
     Indication: OSTEOPOROSIS
     Dosage: 20 UG DAY
     Dates: start: 20031022, end: 20040701
  2. ISOPTIN [Concomitant]
  3. CLONIDINE [Concomitant]
  4. LIPITOR [Concomitant]
  5. LASIX [Concomitant]
  6. LESCOL [Concomitant]
  7. THYROID MEDICATION [Concomitant]
  8. VITAMIN D [Concomitant]

REACTIONS (10)
  - ANXIETY [None]
  - BLOOD PRESSURE [None]
  - CHEST DISCOMFORT [None]
  - FEELING HOT [None]
  - HEPATIC ENZYME INCREASED [None]
  - PAIN IN EXTREMITY [None]
  - PARAESTHESIA [None]
  - SENSATION OF FOREIGN BODY [None]
  - SLEEP DISORDER [None]
  - STOMACH DISCOMFORT [None]
